FAERS Safety Report 5270504-0 (Version None)
Quarter: 2007Q1

REPORT INFORMATION
  Report Type: 
  Country: None (occurrence: None)
  Receive Date: 20070315
  Receipt Date: 20070305
  Transmission Date: 20070707
  Serious: Yes (Hospitalization)
  Sender: FDA-Public Use
  Company Number: 2007PV031091

PATIENT
  Age: 47 Year
  Sex: Female
  Weight: 90.7194 kg

DRUGS (7)
  1. BYETTA [Suspect]
     Indication: DIABETES MELLITUS NON-INSULIN-DEPENDENT
     Dosage: 5 MCG; BID; SC
     Route: 058
     Dates: start: 20061112, end: 20061118
  2. ZIAC [Concomitant]
  3. GLUCOPHAGE XR [Concomitant]
  4. NAPROXEN [Concomitant]
  5. ALLEGRA D 24 HOUR [Concomitant]
  6. SYNTHROID [Concomitant]
  7. ANTACID TAB [Concomitant]

REACTIONS (1)
  - COLITIS ISCHAEMIC [None]
